FAERS Safety Report 12483051 (Version 1)
Quarter: 2016Q2

REPORT INFORMATION
  Report Type: Spontaneous
  Country: FR (occurrence: FR)
  Receive Date: 20160620
  Receipt Date: 20160620
  Transmission Date: 20160815
  Serious: Yes (Other)
  Sender: FDA-Public Use
  Company Number: FR-ELI_LILLY_AND_COMPANY-FR201606004144

PATIENT
  Sex: Male

DRUGS (18)
  1. IRBESARTAN. [Concomitant]
     Active Substance: IRBESARTAN
  2. LANTUS [Concomitant]
     Active Substance: INSULIN GLARGINE
  3. PRAVASTATIN [Concomitant]
     Active Substance: PRAVASTATIN\PRAVASTATIN SODIUM
  4. PHYSIOTENS [Concomitant]
     Active Substance: MOXONIDINE
  5. HUMALOG [Suspect]
     Active Substance: INSULIN LISPRO
     Indication: PRODUCT USED FOR UNKNOWN INDICATION
     Dosage: UNK UNK, UNKNOWN
     Route: 065
     Dates: start: 20160521
  6. LERCANIDIPINE [Concomitant]
     Active Substance: LERCANIDIPINE
  7. MOXONIDINE [Concomitant]
     Active Substance: MOXONIDINE
  8. GLUCOPHAGE [Concomitant]
     Active Substance: METFORMIN HYDROCHLORIDE
     Dosage: UNK, BID
  9. BISOPROLOL [Concomitant]
     Active Substance: BISOPROLOL
  10. METFORMINE [Concomitant]
     Active Substance: METFORMIN HYDROCHLORIDE
     Dosage: UNK, BID
  11. LASILIX                            /00032601/ [Concomitant]
     Active Substance: FUROSEMIDE
  12. SOPROL [Concomitant]
  13. PRAVASTINE [Concomitant]
  14. ESOMEPRAZOL                        /01479301/ [Concomitant]
     Active Substance: ESOMEPRAZOLE
  15. GANFORT [Concomitant]
     Active Substance: BIMATOPROST\TIMOLOL
  16. KARDEGIC [Concomitant]
     Active Substance: ASPIRIN LYSINE
  17. LERCAN [Concomitant]
     Active Substance: LERCANIDIPINE
  18. APROVEL [Concomitant]
     Active Substance: IRBESARTAN

REACTIONS (2)
  - Incorrect dose administered [Unknown]
  - Blood glucose increased [Unknown]
